FAERS Safety Report 7057755-X (Version None)
Quarter: 2010Q4

REPORT INFORMATION
  Report Type: 
  Country: None (occurrence: None)
  Receive Date: 20101022
  Receipt Date: 20101012
  Transmission Date: 20110411
  Serious: Yes (Other)
  Sender: FDA-Public Use
  Company Number: US-PFIZER INC-2010130497

PATIENT
  Sex: Male
  Weight: 87.302 kg

DRUGS (6)
  1. LYRICA [Suspect]
     Indication: NEURALGIA
     Dosage: 150 MG, 1X/DAY
     Route: 048
     Dates: start: 20100801
  2. LYRICA [Suspect]
     Indication: BURNING SENSATION
  3. GABAPENTIN [Suspect]
     Indication: NEURALGIA
     Dosage: 400 MG, 1X/DAY
     Dates: start: 20060101
  4. GABAPENTIN [Suspect]
     Dosage: 1600 MG, 1X/DAY
     Dates: end: 20091101
  5. CYMBALTA [Suspect]
     Indication: NEURALGIA
     Dosage: UNK
  6. LISINOPRIL AND HYDROCHLOROTHIAZIDE [Concomitant]
     Indication: HYPERTENSION

REACTIONS (8)
  - BLOOD SODIUM DECREASED [None]
  - DIZZINESS [None]
  - DRUG INEFFECTIVE [None]
  - FALL [None]
  - GAIT DISTURBANCE [None]
  - HYPERTENSION [None]
  - LIVER DISORDER [None]
  - LIVER FUNCTION TEST ABNORMAL [None]
